FAERS Safety Report 12311445 (Version 1)
Quarter: 2016Q2

REPORT INFORMATION
  Report Type: Report from Study
  Country: NL (occurrence: NL)
  Receive Date: 20160427
  Receipt Date: 20160427
  Transmission Date: 20160815
  Serious: Yes (Death)
  Sender: FDA-Public Use
  Company Number: NL-ABBVIE-16P-114-1613569-00

PATIENT
  Age: 78 Year
  Sex: Male
  Weight: 71 kg

DRUGS (10)
  1. BISACODYL. [Concomitant]
     Active Substance: BISACODYL
     Indication: PRODUCT USED FOR UNKNOWN INDICATION
     Route: 054
  2. OXYCODON [Concomitant]
     Active Substance: OXYCODONE
     Dosage: 1 TO 6 TABLETS, 1 TO 2 TIMES DAILY
     Route: 048
  3. FENTANYL SANDOZ [Concomitant]
     Active Substance: FENTANYL
     Indication: PRODUCT USED FOR UNKNOWN INDICATION
     Dosage: 75UG/HOUR
     Route: 061
  4. VALSARTAN. [Concomitant]
     Active Substance: VALSARTAN
     Indication: PRODUCT USED FOR UNKNOWN INDICATION
     Route: 048
  5. LUCRIN DEPOT [Suspect]
     Active Substance: LEUPROLIDE ACETATE
     Indication: PROSTATE CANCER
     Route: 050
     Dates: start: 20140612, end: 20151120
  6. OMEPRAZOL [Concomitant]
     Active Substance: OMEPRAZOLE
     Indication: PRODUCT USED FOR UNKNOWN INDICATION
     Route: 048
  7. POVIDONE [Concomitant]
     Active Substance: POVIDONE
     Indication: PRODUCT USED FOR UNKNOWN INDICATION
     Route: 047
  8. SILODOSINE [Concomitant]
     Active Substance: SILODOSIN
     Indication: PRODUCT USED FOR UNKNOWN INDICATION
     Route: 048
  9. OXYCODON [Concomitant]
     Active Substance: OXYCODONE
     Indication: PRODUCT USED FOR UNKNOWN INDICATION
     Route: 048
  10. FENTANYL SANDOZ [Concomitant]
     Active Substance: FENTANYL
     Dosage: 100UG/HOUR
     Route: 061

REACTIONS (1)
  - Death [Fatal]

NARRATIVE: CASE EVENT DATE: 20160423
